FAERS Safety Report 7974516-5 (Version None)
Quarter: 2011Q4

REPORT INFORMATION
  Report Type: 
  Country: None (occurrence: None)
  Receive Date: 20111213
  Receipt Date: 20111206
  Transmission Date: 20120403
  Serious: Yes (Congenital Anomaly, Other)
  Sender: FDA-Public Use
  Company Number: US-ABBOTT-11P-163-0836438-00

PATIENT

DRUGS (1)
  1. HUMIRA [Suspect]
     Indication: MATERNAL EXPOSURE TIMING UNSPECIFIED
     Route: 064

REACTIONS (5)
  - PHENYLALANINE SCREEN POSITIVE [None]
  - ECTOPIC THYROID [None]
  - FOETAL EXPOSURE DURING PREGNANCY [None]
  - BRADYCARDIA [None]
  - BLOOD THYROID STIMULATING HORMONE INCREASED [None]
